FAERS Safety Report 9715158 (Version 1)
Quarter: 2013Q4

REPORT INFORMATION
  Report Type: Report from Study
  Country: US (occurrence: US)
  Receive Date: 20131126
  Receipt Date: 20131126
  Transmission Date: 20140711
  Serious: Yes (Other)
  Sender: FDA-Public Use
  Company Number: US-BAXTER-2013BAX047349

PATIENT
  Sex: 0

DRUGS (5)
  1. GRANULOCYTE COLONY-STIMULATING FACTOR NOS [Concomitant]
     Indication: PRODUCT USED FOR UNKNOWN INDICATION
     Route: 065
  2. CYCLOPHOSPHAMIDE FOR INJECTION, USP [Suspect]
     Indication: LYMPHOMA
     Route: 042
  3. MESNA FOR INJECTION 1 GRAM [Suspect]
     Indication: LYMPHOMA
     Route: 041
  4. BCNU [Suspect]
     Indication: LYMPHOMA
     Route: 042
  5. VP-16 [Suspect]
     Indication: LYMPHOMA
     Route: 042

REACTIONS (1)
  - Pneumonitis [Unknown]
